FAERS Safety Report 21786918 (Version 2)
Quarter: 2023Q1

REPORT INFORMATION
  Report Type: Spontaneous
  Country: SY (occurrence: SY)
  Receive Date: 20221228
  Receipt Date: 20230110
  Transmission Date: 20230418
  Serious: Yes (Other)
  Sender: FDA-Public Use
  Company Number: SY-JNJFOC-20221243973

PATIENT
  Sex: Male

DRUGS (4)
  1. ZYTIGA [Suspect]
     Active Substance: ABIRATERONE ACETATE
     Indication: Prostate cancer metastatic
     Route: 048
  2. PREDNISOLONE [Suspect]
     Active Substance: PREDNISOLONE
     Indication: Prostate cancer metastatic
     Route: 065
  3. DOCETAXEL [Suspect]
     Active Substance: DOCETAXEL
     Indication: Prostate cancer metastatic
     Route: 065
  4. MITOXANTRONE [Suspect]
     Active Substance: MITOXANTRONE HYDROCHLORIDE
     Indication: Prostate cancer metastatic
     Route: 065

REACTIONS (10)
  - Cardiac fibrillation [Unknown]
  - Hypokalaemia [Unknown]
  - Drug ineffective [Unknown]
  - Fatigue [Unknown]
  - Arthralgia [Unknown]
  - Hot flush [Unknown]
  - Tension [Unknown]
  - Nausea [Unknown]
  - Stress [Unknown]
  - Oedema [Unknown]
